FAERS Safety Report 22058252 (Version 1)
Quarter: 2023Q1

REPORT INFORMATION
  Report Type: Report from Study
  Country: CN (occurrence: CN)
  Receive Date: 20230303
  Receipt Date: 20230303
  Transmission Date: 20230418
  Serious: Yes (Hospitalization)
  Sender: FDA-Public Use
  Company Number: CN-JNJFOC-20211029412

PATIENT
  Age: 68 Year
  Sex: Female
  Weight: 60 kg

DRUGS (11)
  1. AMIVANTAMAB [Suspect]
     Active Substance: AMIVANTAMAB
     Indication: Non-small cell lung cancer
     Dosage: C1D1
     Dates: start: 20210712, end: 20210712
  2. AMIVANTAMAB [Suspect]
     Active Substance: AMIVANTAMAB
     Dosage: C1D2
     Dates: start: 20210713, end: 20210713
  3. AMIVANTAMAB [Suspect]
     Active Substance: AMIVANTAMAB
     Dates: start: 20210719, end: 20210719
  4. AMIVANTAMAB [Suspect]
     Active Substance: AMIVANTAMAB
     Dates: start: 20210726, end: 20210726
  5. AMIVANTAMAB [Suspect]
     Active Substance: AMIVANTAMAB
     Dates: start: 20210802, end: 20210802
  6. AMIVANTAMAB [Suspect]
     Active Substance: AMIVANTAMAB
     Dates: start: 20210809, end: 20210809
  7. AMIVANTAMAB [Suspect]
     Active Substance: AMIVANTAMAB
     Dates: start: 20210823, end: 20210823
  8. AMIVANTAMAB [Suspect]
     Active Substance: AMIVANTAMAB
     Dates: start: 20210906, end: 20210906
  9. AMIVANTAMAB [Suspect]
     Active Substance: AMIVANTAMAB
     Dates: start: 20210920, end: 20210920
  10. AMIVANTAMAB [Suspect]
     Active Substance: AMIVANTAMAB
     Dates: start: 20211002, end: 20211002
  11. HALOMETASONE [Concomitant]
     Active Substance: HALOMETASONE
     Indication: Paronychia
     Dosage: ALSO REPORTED AS CREAM
     Route: 061
     Dates: start: 20211002

REACTIONS (1)
  - Pulmonary embolism [Recovering/Resolving]

NARRATIVE: CASE EVENT DATE: 20211014
